FAERS Safety Report 16230414 (Version 1)
Quarter: 2019Q2

REPORT INFORMATION
  Report Type: Spontaneous
  Country: US (occurrence: US)
  Receive Date: 20190423
  Receipt Date: 20190423
  Transmission Date: 20190711
  Serious: No
  Sender: FDA-Public Use
  Company Number: US-BAYER-2019-082015

PATIENT
  Age: 66 Year
  Sex: Female

DRUGS (2)
  1. BETASERON [Suspect]
     Active Substance: INTERFERON BETA-1B
     Dosage: 1 DF, QOD
     Route: 058
  2. BETACONNECT [Suspect]
     Active Substance: DEVICE

REACTIONS (2)
  - Incorrect dose administered [None]
  - Device malfunction [Unknown]

NARRATIVE: CASE EVENT DATE: 20190412
